FAERS Safety Report 6219857-7 (Version None)
Quarter: 2009Q2

REPORT INFORMATION
  Report Type: 
  Country: None (occurrence: None)
  Receive Date: 20090609
  Receipt Date: 20090401
  Transmission Date: 20091009
  Serious: No
  Sender: FDA-Public Use
  Company Number: US-BAYER-200917559NA

PATIENT
  Age: 65 Year
  Sex: Female

DRUGS (2)
  1. ULTRAVIST 370 [Suspect]
     Indication: COMPUTERISED TOMOGRAM
     Dosage: TOTAL DAILY DOSE: 100 ML  UNIT DOSE: 500 ML
     Route: 042
     Dates: start: 20090401, end: 20090401
  2. ULTRAVIST 370 [Suspect]
     Route: 048
     Dates: start: 20090401, end: 20090401

REACTIONS (2)
  - PRURITUS [None]
  - URTICARIA [None]
